FAERS Safety Report 15482291 (Version 1)
Quarter: 2018Q4

REPORT INFORMATION
  Report Type: Spontaneous
  Country: JP (occurrence: JP)
  Receive Date: 20181010
  Receipt Date: 20181010
  Transmission Date: 20190205
  Serious: Yes (Other)
  Sender: FDA-Public Use
  Company Number: JP-TEVA-201711_00000888

PATIENT
  Age: 78 Year
  Sex: Male
  Weight: 65 kg

DRUGS (15)
  1. ACTOS [Suspect]
     Active Substance: PIOGLITAZONE HYDROCHLORIDE
     Route: 048
     Dates: end: 20150123
  2. PLAVIX [Concomitant]
     Active Substance: CLOPIDOGREL BISULFATE
     Route: 048
     Dates: start: 20131004, end: 20160809
  3. LOCHOL [Concomitant]
     Active Substance: FLUVASTATIN SODIUM
     Route: 048
     Dates: start: 20131004, end: 20140527
  4. EPADEL S [Concomitant]
     Active Substance: ICOSAPENT ETHYL
     Route: 048
     Dates: start: 20140207, end: 20141121
  5. TRAZENTA [Concomitant]
     Active Substance: LINAGLIPTIN
     Route: 048
     Dates: start: 20150123, end: 20170113
  6. PLAVIX [Concomitant]
     Active Substance: CLOPIDOGREL BISULFATE
     Route: 048
     Dates: start: 20170113
  7. BASEN [Concomitant]
     Active Substance: VOGLIBOSE
     Dosage: 1.8 MILLIGRAM DAILY;
     Route: 048
     Dates: start: 20070720, end: 20071025
  8. PLAVIX [Concomitant]
     Active Substance: CLOPIDOGREL BISULFATE
     Route: 048
     Dates: start: 20160905
  9. LOCHOL [Concomitant]
     Active Substance: FLUVASTATIN SODIUM
     Route: 048
     Dates: start: 20140530, end: 20170112
  10. AMARYL [Concomitant]
     Active Substance: GLIMEPIRIDE
     Route: 048
     Dates: start: 20151218, end: 20170113
  11. ACTOS [Suspect]
     Active Substance: PIOGLITAZONE HYDROCHLORIDE
     Route: 048
     Dates: start: 20150522, end: 20151218
  12. JANUVIA [Concomitant]
     Active Substance: SITAGLIPTIN PHOSPHATE
     Route: 048
     Dates: end: 20150123
  13. ACTOS [Suspect]
     Active Substance: PIOGLITAZONE HYDROCHLORIDE
     Indication: PRODUCT USED FOR UNKNOWN INDICATION
     Route: 048
     Dates: start: 20071026, end: 20090417
  14. EPADEL S [Concomitant]
     Active Substance: ICOSAPENT ETHYL
     Route: 048
     Dates: start: 20131004, end: 20140206
  15. URIEF [Concomitant]
     Active Substance: SILODOSIN
     Route: 048
     Dates: start: 20160905, end: 20161118

REACTIONS (2)
  - Haematuria [Unknown]
  - Bladder cancer [Recovering/Resolving]

NARRATIVE: CASE EVENT DATE: 20160729
